FAERS Safety Report 11830853 (Version 2)
Quarter: 2016Q1

REPORT INFORMATION
  Report Type: Spontaneous
  Country: US (occurrence: US)
  Receive Date: 20151214
  Receipt Date: 20160321
  Transmission Date: 20160525
  Serious: Yes (Other)
  Sender: FDA-Public Use
  Company Number: US-TEVA-618204ACC

PATIENT
  Age: 23 Year
  Sex: Female
  Weight: 84.44 kg

DRUGS (2)
  1. PARAGARD T 380A [Suspect]
     Active Substance: COPPER
     Indication: CONTRACEPTION
     Route: 015
     Dates: start: 20141121, end: 20151218
  2. PARAGARD T 380A [Suspect]
     Active Substance: COPPER
     Dates: start: 20151218

REACTIONS (4)
  - Embedded device [Not Recovered/Not Resolved]
  - Pain [Recovered/Resolved]
  - Pelvic pain [Not Recovered/Not Resolved]
  - Device dislocation [Recovered/Resolved]

NARRATIVE: CASE EVENT DATE: 20141121
